FAERS Safety Report 18529592 (Version 1)
Quarter: 2020Q4

REPORT INFORMATION
  Report Type: Spontaneous
  Country: US (occurrence: US)
  Receive Date: 20201120
  Receipt Date: 20201120
  Transmission Date: 20210114
  Serious: No
  Sender: FDA-Public Use
  Company Number: US-NOVOPROD-719619

PATIENT
  Age: 77 Year
  Sex: Male

DRUGS (1)
  1. NOVOLOG [Suspect]
     Active Substance: INSULIN ASPART
     Indication: PRODUCT USED FOR UNKNOWN INDICATION
     Dosage: 13 UP TO 14 UNITS
     Route: 058

REACTIONS (2)
  - Blood glucose increased [Unknown]
  - Memory impairment [Unknown]

NARRATIVE: CASE EVENT DATE: 20200315
